FAERS Safety Report 9799566 (Version 1)
Quarter: 2014Q1

REPORT INFORMATION
  Report Type: Spontaneous
  Country: US (occurrence: US)
  Receive Date: 20140106
  Receipt Date: 20140106
  Transmission Date: 20141002
  Serious: No
  Sender: FDA-Public Use
  Company Number: US-GILEAD-2010-0030287

PATIENT
  Age: 66 Year
  Sex: Male

DRUGS (19)
  1. LETAIRIS [Suspect]
     Indication: PULMONARY ARTERIAL HYPERTENSION
     Route: 048
     Dates: start: 20100512
  2. XOPENEX [Concomitant]
  3. PROPECIA [Concomitant]
  4. SINGULAIR [Concomitant]
  5. METHOCARBAMOL [Concomitant]
  6. GABAPENTIN [Concomitant]
  7. CADUET [Concomitant]
  8. SPIRONOLACTONE [Concomitant]
  9. PROPRANOLOL [Concomitant]
  10. LEVOTHYROXINE [Concomitant]
  11. NIASPAN [Concomitant]
  12. GLYBURIDE [Concomitant]
  13. AMITRIPTYLINE [Concomitant]
  14. OXYCODONE [Concomitant]
  15. DIOVAN [Concomitant]
  16. BUMETANIDE [Concomitant]
  17. BUDEPRION [Concomitant]
  18. NEXIUM [Concomitant]
  19. ASTALIN [Concomitant]

REACTIONS (2)
  - Rash generalised [Not Recovered/Not Resolved]
  - Pruritus [Not Recovered/Not Resolved]
